FAERS Safety Report 6743160-X (Version None)
Quarter: 2010Q2

REPORT INFORMATION
  Report Type: 
  Country: None (occurrence: None)
  Receive Date: 20100527
  Receipt Date: 20100513
  Transmission Date: 20101027
  Serious: Yes (Hospitalization)
  Sender: FDA-Public Use
  Company Number: IS-MYLANLABS-2010S1008564

PATIENT
  Age: 34 Year
  Sex: Male

DRUGS (1)
  1. ATENOLOL [Suspect]
     Indication: PSYCHOTIC DISORDER

REACTIONS (3)
  - HYPOTENSION [None]
  - OVERDOSE [None]
  - VENTRICULAR ASYSTOLE [None]
